FAERS Safety Report 4481414-0 (Version None)
Quarter: 2004Q3

REPORT INFORMATION
  Report Type: 
  Country: None (occurrence: None)
  Receive Date: 20040923
  Receipt Date: 20040810
  Transmission Date: 20050211
  Serious: Yes (Other)
  Sender: FDA-Public Use
  Company Number: USA040773439

PATIENT
  Age: 73 Year
  Sex: Female

DRUGS (13)
  1. FORTEO [Suspect]
     Indication: OSTEOPOROSIS
     Dosage: 20 UG DAY
     Dates: start: 20040716
  2. DARVOCET-N 100 [Concomitant]
  3. AMLODIPINE BESYLATE W/BENAZEPRIL HYDROCHLOR. [Concomitant]
  4. NEURONTIN [Concomitant]
  5. ACETAMINOPHEN [Concomitant]
  6. FUROSEMIDE [Concomitant]
  7. FLOVENT [Concomitant]
  8. MIACALCIN [Concomitant]
  9. SPIRIVA [Concomitant]
  10. ALBUTEROL [Concomitant]
  11. FOLIC ACID [Concomitant]
  12. PROTONIX [Concomitant]
  13. METOCLOPRAMIDE [Concomitant]

REACTIONS (6)
  - DIZZINESS [None]
  - FEELING HOT [None]
  - HEADACHE [None]
  - LOSS OF CONSCIOUSNESS [None]
  - NAUSEA [None]
  - VOMITING [None]
